FAERS Safety Report 19087014 (Version 1)
Quarter: 2021Q2

REPORT INFORMATION
  Report Type: Spontaneous
  Country: FR (occurrence: FR)
  Receive Date: 20210402
  Receipt Date: 20210402
  Transmission Date: 20210717
  Serious: Yes (Other)
  Sender: FDA-Public Use
  Company Number: FR-PFIZER INC-2021317584

PATIENT
  Age: 59 Year
  Sex: Male

DRUGS (15)
  1. KETAMINE [Concomitant]
     Active Substance: KETAMINE
     Indication: HYPERAESTHESIA
     Dosage: 0.2 MG/KG
     Route: 065
  2. PARACETAMOL [Concomitant]
     Active Substance: ACETAMINOPHEN
     Indication: ANALGESIC THERAPY
     Dosage: UNK
     Route: 065
  3. SEVOFLURANE. [Suspect]
     Active Substance: SEVOFLURANE
     Dosage: 2.5 %
     Route: 065
  4. PROPOFOL. [Suspect]
     Active Substance: PROPOFOL
     Dosage: 0.5 MG/KG (2 BOLUS)
     Route: 065
  5. ROCURONIUM BROMIDE. [Suspect]
     Active Substance: ROCURONIUM BROMIDE
     Indication: ENDOTRACHEAL INTUBATION
     Dosage: 0.6 MG/KG
     Route: 065
  6. SUFENTANIL [Suspect]
     Active Substance: SUFENTANIL
     Indication: ANAESTHESIA
     Dosage: 0.2 UG/KG
     Route: 065
  7. DEXTROSE. [Concomitant]
     Active Substance: DEXTROSE
     Indication: LACTIC ACIDOSIS
     Dosage: 10 %  (500 ML)
     Route: 065
  8. ROCURONIUM BROMIDE. [Suspect]
     Active Substance: ROCURONIUM BROMIDE
     Indication: ANAESTHESIA
  9. SEVOFLURANE. [Suspect]
     Active Substance: SEVOFLURANE
     Indication: MAINTENANCE OF ANAESTHESIA
     Dosage: 1.5 %
     Route: 065
  10. DEXTROSE. [Concomitant]
     Active Substance: DEXTROSE
     Indication: HYPOGLYCAEMIA
  11. MORPHINE [Concomitant]
     Active Substance: MORPHINE
     Indication: ANTIINFLAMMATORY THERAPY
     Dosage: UNK
     Route: 048
  12. KETOPROFEN. [Concomitant]
     Active Substance: KETOPROFEN
     Indication: ANTIINFLAMMATORY THERAPY
     Dosage: UNK
     Route: 065
  13. PROPOFOL. [Suspect]
     Active Substance: PROPOFOL
     Indication: GENERAL ANAESTHESIA
     Dosage: 3 MG/KG
     Route: 065
  14. NEFOPAM [Concomitant]
     Active Substance: NEFOPAM
     Indication: ANALGESIC THERAPY
     Dosage: UNK
     Route: 065
  15. DROPERIDOL. [Concomitant]
     Active Substance: DROPERIDOL
     Indication: PROPHYLAXIS OF NAUSEA AND VOMITING
     Dosage: 625 UG
     Route: 065

REACTIONS (1)
  - Neuromuscular blockade [Recovered/Resolved]
